FAERS Safety Report 11021041 (Version 3)
Quarter: 2015Q3

REPORT INFORMATION
  Report Type: Spontaneous
  Country: JP (occurrence: JP)
  Receive Date: 20150413
  Receipt Date: 20150810
  Transmission Date: 20151125
  Serious: Yes (Other)
  Sender: FDA-Public Use
  Company Number: JP-SHIRE-JP201503118

PATIENT
  Age: 59 Year
  Sex: Male

DRUGS (14)
  1. ALEVIATIN                          /00017401/ [Concomitant]
     Active Substance: PHENYTOIN SODIUM
     Indication: EPILEPSY
     Dosage: 2 G, UNKNOWN
     Route: 048
     Dates: start: 20071113
  2. BERIZYM                            /01945301/ [Concomitant]
     Indication: GASTROINTESTINAL DISORDER
     Dosage: 1.5 G, UNKNOWN
     Route: 048
     Dates: start: 19941024
  3. FOSRENOL [Suspect]
     Active Substance: LANTHANUM CARBONATE
     Indication: HYPERPHOSPHATAEMIA
     Dosage: 1500 MG, UNKNOWN
     Route: 048
     Dates: start: 20120613, end: 20130829
  4. REGPARA [Concomitant]
     Active Substance: CINACALCET HYDROCHLORIDE
     Indication: HYPERPARATHYROIDISM SECONDARY
     Dosage: 25 MG, UNKNOWN
     Route: 048
     Dates: start: 20080317
  5. TAKEPRON [Concomitant]
     Active Substance: LANSOPRAZOLE
     Indication: GASTROOESOPHAGEAL REFLUX DISEASE
     Dosage: 15 MG, UNKNOWN
     Route: 048
     Dates: start: 20090128
  6. CALBLOCK [Concomitant]
     Active Substance: AZELNIDIPINE
     Indication: HYPERTENSION
     Dosage: 8 MG, UNKNOWN
     Route: 048
     Dates: start: 20000403
  7. BLOPRESS [Concomitant]
     Active Substance: CANDESARTAN CILEXETIL
     Indication: HYPERTENSION
     Dosage: 4 MG, UNKNOWN
     Route: 048
     Dates: start: 20000330
  8. FOSRENOL [Suspect]
     Active Substance: LANTHANUM CARBONATE
     Dosage: 1500 MG, UNKNOWN
     Route: 048
     Dates: start: 20090401, end: 20120612
  9. BUFFERIN [Concomitant]
     Active Substance: ASPIRIN
     Indication: ANGINA PECTORIS
     Dosage: 81 MG, UNKNOWN
     Route: 048
     Dates: start: 20000330
  10. HERBESSER [Concomitant]
     Active Substance: DILTIAZEM HYDROCHLORIDE
     Indication: ANGINA PECTORIS
     Dosage: 90 MG, UNKNOWN
     Route: 048
     Dates: start: 20000329
  11. EPADEL                             /01682401/ [Concomitant]
     Active Substance: ETHYL ICOSAPENTATE\ICOSAPENT
     Indication: HYPERLIPIDAEMIA
     Dosage: 1800 MG, UNKNOWN
     Route: 048
     Dates: start: 20040319
  12. LAC-B [Concomitant]
     Active Substance: BIFIDOBACTERIUM SPP.
     Indication: GASTROINTESTINAL DISORDER
     Dosage: 1.5 G, UNKNOWN
     Route: 048
     Dates: start: 19941024
  13. FOSRENOL [Suspect]
     Active Substance: LANTHANUM CARBONATE
     Indication: HYPERPHOSPHATAEMIA
     Dosage: 750 MG, UNKNOWN
     Route: 048
     Dates: start: 20090325, end: 20090331
  14. CINAL [Concomitant]
     Active Substance: ASCORBIC ACID\CALCIUM PANTOTHENATE
     Indication: VITAMIN C DEFICIENCY
     Dosage: 2 G, UNKNOWN
     Route: 048
     Dates: start: 20011119

REACTIONS (5)
  - Medication residue present [Not Recovered/Not Resolved]
  - Nausea [Recovering/Resolving]
  - Gastric mucosal hypertrophy [Not Recovered/Not Resolved]
  - Decreased appetite [Recovering/Resolving]
  - Weight decreased [Unknown]

NARRATIVE: CASE EVENT DATE: 20130605
